FAERS Safety Report 4553341-1 (Version None)
Quarter: 2005Q1

REPORT INFORMATION
  Report Type: 
  Country: None (occurrence: None)
  Receive Date: 20050114
  Receipt Date: 20041203
  Transmission Date: 20050727
  Serious: Yes (Hospitalization)
  Sender: FDA-Public Use
  Company Number: US-AMGEN-KDL103320

PATIENT
  Sex: Female

DRUGS (7)
  1. ENBREL [Suspect]
     Indication: RHEUMATOID ARTHRITIS
     Route: 058
     Dates: start: 19990101, end: 20040301
  2. ATENOLOL [Concomitant]
  3. ATACAND [Concomitant]
  4. ALLEGRA [Concomitant]
  5. ALBUTEROL [Concomitant]
  6. FLONASE [Concomitant]
  7. MEDROXYPROGESTERONE [Concomitant]

REACTIONS (4)
  - ANTIPHOSPHOLIPID SYNDROME [None]
  - GASTROINTESTINAL HAEMORRHAGE [None]
  - INTESTINAL ISCHAEMIA [None]
  - THROMBOSIS [None]
